FAERS Safety Report 7526998-0 (Version None)
Quarter: 2011Q2

REPORT INFORMATION
  Report Type: 
  Country: None (occurrence: None)
  Receive Date: 20110606
  Receipt Date: 20040730
  Transmission Date: 20111010
  Serious: Yes (Death)
  Sender: FDA-Public Use
  Company Number: PHEH2004US08265

PATIENT
  Sex: Male

DRUGS (4)
  1. CLOZAPINE [Suspect]
     Dosage: 200 MG, QD
     Route: 048
     Dates: start: 20021202
  2. SEROQUEL [Concomitant]
  3. DIOVAN [Concomitant]
  4. ENALAPRIL MALEATE [Concomitant]

REACTIONS (1)
  - DEATH [None]
